FAERS Safety Report 7471729-6 (Version None)
Quarter: 2011Q2

REPORT INFORMATION
  Report Type: 
  Country: None (occurrence: None)
  Receive Date: 20110511
  Receipt Date: 20110209
  Transmission Date: 20111010
  Serious: No
  Sender: FDA-Public Use
  Company Number: A0805681A

PATIENT
  Age: 55 Year
  Sex: Female

DRUGS (4)
  1. HERCEPTIN [Concomitant]
  2. TYKERB [Suspect]
     Dosage: 3TAB PER DAY
     Route: 048
     Dates: start: 20090501
  3. ZOMETA [Concomitant]
  4. UNSPECIFIED MEDICATION [Concomitant]

REACTIONS (9)
  - BALANCE DISORDER [None]
  - WEIGHT LOSS POOR [None]
  - ANGER [None]
  - URTICARIA [None]
  - FATIGUE [None]
  - RASH VESICULAR [None]
  - DIZZINESS POSTURAL [None]
  - ASTHENIA [None]
  - GAIT DISTURBANCE [None]
